FAERS Safety Report 7775680-3 (Version None)
Quarter: 2011Q3

REPORT INFORMATION
  Report Type: 
  Country: None (occurrence: None)
  Receive Date: 20110923
  Receipt Date: 20110920
  Transmission Date: 20111222
  Serious: Yes (Other)
  Sender: FDA-Public Use
  Company Number: US-GLAXOSMITHKLINE-A0945305A

PATIENT
  Sex: Female

DRUGS (2)
  1. NO CONCURRENT MEDICATION [Concomitant]
  2. HORIZANT [Suspect]
     Route: 065

REACTIONS (2)
  - DIZZINESS [None]
  - SUICIDAL IDEATION [None]
